FAERS Safety Report 7796744-4 (Version None)
Quarter: 2011Q4

REPORT INFORMATION
  Report Type: 
  Country: None (occurrence: None)
  Receive Date: 20111003
  Receipt Date: 20110829
  Transmission Date: 20120403
  Serious: Yes (Other)
  Sender: FDA-Public Use
  Company Number: 844986

PATIENT
  Age: 22 Year
  Sex: Male
  Weight: 58.9676 kg

DRUGS (1)
  1. MURINE EAR WAX REMOVAL SYSTEM [Suspect]
     Dosage: APPLIED INTO EARS
     Dates: start: 20110829, end: 20110829

REACTIONS (2)
  - TYMPANIC MEMBRANE PERFORATION [None]
  - EAR HAEMORRHAGE [None]
